FAERS Safety Report 12655569 (Version 2)
Quarter: 2016Q3

REPORT INFORMATION
  Report Type: Spontaneous
  Country: US (occurrence: US)
  Receive Date: 20160816
  Receipt Date: 20160831
  Transmission Date: 20161109
  Serious: Yes (Other)
  Sender: FDA-Public Use
  Company Number: US-SA-2016SA145156

PATIENT
  Sex: Male
  Weight: 81.65 kg

DRUGS (13)
  1. LANTUS [Suspect]
     Active Substance: INSULIN GLARGINE
     Route: 065
  2. METFORMIN [Suspect]
     Active Substance: METFORMIN HYDROCHLORIDE
     Route: 065
  3. NOVOLOG [Suspect]
     Active Substance: INSULIN ASPART
     Indication: DIABETES MELLITUS
     Route: 065
  4. HCG [Concomitant]
     Active Substance: GONADOTROPHIN, CHORIONIC
     Indication: HYPOTHALAMO-PITUITARY DISORDER
  5. XANAX [Concomitant]
     Active Substance: ALPRAZOLAM
  6. LORAZEPAM. [Concomitant]
     Active Substance: LORAZEPAM
     Dosage: TWO TIMES A DAY AS NEEDED?START DATE: ABOUT 20 OR 30 YEARS AGO
     Route: 048
  7. DOLOPHINE [Concomitant]
     Active Substance: METHADONE HYDROCHLORIDE
     Indication: PAIN
     Dates: start: 1990
  8. DOLOPHINE [Concomitant]
     Active Substance: METHADONE HYDROCHLORIDE
     Indication: PANCREATITIS CHRONIC
     Route: 048
  9. GABAPENTIN. [Concomitant]
     Active Substance: GABAPENTIN
     Indication: DIABETIC NEUROPATHY
     Dosage: LAST DOSE WAS IN 2010 OR 2011
     Route: 048
  10. NEURONTIN [Concomitant]
     Active Substance: GABAPENTIN
     Indication: DIABETIC NEUROPATHY
     Dosage: LAST DOSE WAS IN 2010 OR 2011
     Route: 048
  11. DOLOPHINE [Concomitant]
     Active Substance: METHADONE HYDROCHLORIDE
     Indication: PAIN
     Route: 048
  12. LYRICA [Concomitant]
     Active Substance: PREGABALIN
     Indication: DIABETIC NEUROPATHY
     Dosage: TWICE A DAY AS NEEDED?START DATE: AROUND 2009 OR 2010.
     Route: 048
  13. DOLOPHINE [Concomitant]
     Active Substance: METHADONE HYDROCHLORIDE
     Indication: PANCREATITIS CHRONIC
     Dates: start: 1990

REACTIONS (2)
  - Diabetic ketoacidosis [Unknown]
  - Glycosylated haemoglobin increased [Unknown]
